FAERS Safety Report 8100871-1 (Version None)
Quarter: 2012Q1

REPORT INFORMATION
  Report Type: 
  Country: None (occurrence: None)
  Receive Date: 20120129
  Receipt Date: 20110908
  Transmission Date: 20120608
  Serious: No
  Sender: FDA-Public Use
  Company Number: US-ABBOTT-11P-163-0852950-00

PATIENT
  Age: 42 Year
  Sex: Female

DRUGS (10)
  1. PROZAC [Concomitant]
     Indication: PRODUCT USED FOR UNKNOWN INDICATION
  2. XANAX [Concomitant]
     Indication: PRODUCT USED FOR UNKNOWN INDICATION
     Dosage: AT BEDTIME
  3. VICODIN [Concomitant]
     Indication: PAIN
     Dosage: 7.5/750 AS NEEDED
  4. ELAVIL [Concomitant]
     Indication: PRODUCT USED FOR UNKNOWN INDICATION
  5. HUMIRA [Suspect]
     Indication: PSORIATIC ARTHROPATHY
     Dates: start: 20100701
  6. VITAMIN B-12 [Concomitant]
     Indication: PRODUCT USED FOR UNKNOWN INDICATION
     Dosage: DAILY
  7. VITAMIN D [Concomitant]
     Indication: PRODUCT USED FOR UNKNOWN INDICATION
     Dosage: DAILY
  8. FLEXERIL [Concomitant]
     Indication: PAIN
  9. BIO-Q10 [Concomitant]
     Indication: PRODUCT USED FOR UNKNOWN INDICATION
     Dosage: DAILY
  10. M.V.I. [Concomitant]
     Indication: PRODUCT USED FOR UNKNOWN INDICATION
     Dosage: DAILY

REACTIONS (4)
  - HEADACHE [None]
  - SENSATION OF HEAVINESS [None]
  - TREMOR [None]
  - FATIGUE [None]
